FAERS Safety Report 6204307-7 (Version None)
Quarter: 2009Q2

REPORT INFORMATION
  Report Type: 
  Country: None (occurrence: None)
  Receive Date: 20090522
  Receipt Date: 20090507
  Transmission Date: 20091009
  Serious: Yes (Life-Threatening, Hospitalization, Other)
  Sender: FDA-Public Use
  Company Number: 2009SP008545

PATIENT
  Age: 13 Year
  Sex: Female
  Weight: 54.4316 kg

DRUGS (1)
  1. CORICIDIN HBP COUGH + COLD (CHLORPHENIRAMINE MALEATE/DEXTROMETHORPHAN [Suspect]
     Dosage: 36 MG; ONCE; PO
     Route: 048
     Dates: start: 20090418

REACTIONS (6)
  - ABASIA [None]
  - DRUG TOXICITY [None]
  - HALLUCINATION [None]
  - HEART RATE IRREGULAR [None]
  - HYPERTENSION [None]
  - RESPIRATION ABNORMAL [None]
